FAERS Safety Report 8116429-4 (Version None)
Quarter: 2012Q1

REPORT INFORMATION
  Report Type: 
  Country: None (occurrence: None)
  Receive Date: 20120206
  Receipt Date: 20120130
  Transmission Date: 20120608
  Serious: No
  Sender: FDA-Public Use
  Company Number: US-PFIZER INC-2012006880

PATIENT
  Sex: Female
  Weight: 51.247 kg

DRUGS (4)
  1. PRISTIQ [Suspect]
     Indication: DEPRESSION
     Dosage: 50 MG, 1X/DAY
     Route: 048
     Dates: start: 20110214
  2. TRAZODONE [Concomitant]
     Indication: DEPRESSION
  3. TRAZODONE [Concomitant]
     Indication: SLEEP DISORDER
     Dosage: 50 MG, 1X/DAY, QHS
  4. CYMBALTA [Suspect]
     Indication: DEPRESSION
     Dosage: UNK

REACTIONS (5)
  - CRYING [None]
  - CHEST DISCOMFORT [None]
  - MALAISE [None]
  - DRUG INEFFECTIVE [None]
  - ASTHENIA [None]
